FAERS Safety Report 8546778-7 (Version None)
Quarter: 2012Q3

REPORT INFORMATION
  Report Type: 
  Country: None (occurrence: None)
  Receive Date: 20120727
  Receipt Date: 20120307
  Transmission Date: 20120928
  Serious: No
  Sender: FDA-Public Use
  Company Number: US-ASTRAZENECA-2012SE09242

PATIENT
  Age: 26 Year
  Sex: Female

DRUGS (2)
  1. SEROQUEL [Suspect]
     Route: 048
  2. SEROQUEL [Suspect]
     Route: 048

REACTIONS (8)
  - MALAISE [None]
  - DRUG HYPERSENSITIVITY [None]
  - INITIAL INSOMNIA [None]
  - DRUG PRESCRIBING ERROR [None]
  - PARAESTHESIA [None]
  - RESTLESS LEGS SYNDROME [None]
  - PYREXIA [None]
  - DRUG DISPENSING ERROR [None]
